FAERS Safety Report 12471421 (Version 1)
Quarter: 2016Q2

REPORT INFORMATION
  Report Type: Report from Study
  Country: JP (occurrence: JP)
  Receive Date: 20160616
  Receipt Date: 20160616
  Transmission Date: 20160815
  Serious: Yes (Other)
  Sender: FDA-Public Use
  Company Number: JP-ASTELLAS-2010JP006145

PATIENT
  Age: 72 Year
  Sex: Female
  Weight: 63 kg

DRUGS (36)
  1. BAYASPIRIN [Concomitant]
     Active Substance: ASPIRIN
     Indication: CEREBROVASCULAR DISORDER
  2. ELCITONIN [Concomitant]
     Active Substance: ELCATONIN
     Indication: BACK PAIN
     Dosage: UNK UNK, UNKNOWN FREQ.
     Route: 030
  3. CRAVIT [Concomitant]
     Active Substance: LEVOFLOXACIN
     Route: 065
  4. CRAVIT [Concomitant]
     Active Substance: LEVOFLOXACIN
     Route: 065
  5. MEDICON                            /00048102/ [Concomitant]
     Active Substance: DEXTROMETHORPHAN HYDROBROMIDE
     Indication: BRONCHITIS
     Route: 048
  6. HOKUNALIN                          /00654902/ [Concomitant]
     Indication: BRONCHITIS
     Route: 065
  7. PL [Concomitant]
     Active Substance: ACETAMINOPHEN\CAFFEINE\PROMETHAZINE\SALICYLAMIDE
     Route: 065
  8. TACROLIMUS. [Suspect]
     Active Substance: TACROLIMUS
     Indication: LUPUS NEPHRITIS
     Route: 048
     Dates: start: 20071217
  9. LENDORMIN [Concomitant]
     Active Substance: BROTIZOLAM
     Indication: PRODUCT USED FOR UNKNOWN INDICATION
     Dosage: 0.5 MG, ONCE DAILY
     Route: 048
     Dates: end: 20100221
  10. LENDORMIN [Concomitant]
     Active Substance: BROTIZOLAM
     Dosage: 0.25 MG, ONCE DAILY
     Route: 048
     Dates: start: 20100222
  11. LIVALO [Concomitant]
     Active Substance: PITAVASTATIN CALCIUM
     Indication: PRODUCT USED FOR UNKNOWN INDICATION
     Route: 048
  12. CRAVIT [Concomitant]
     Active Substance: LEVOFLOXACIN
     Indication: BRONCHITIS
     Route: 065
  13. CRAVIT [Concomitant]
     Active Substance: LEVOFLOXACIN
     Route: 065
  14. MUCODYNE [Concomitant]
     Active Substance: CARBOCYSTEINE
     Indication: BRONCHITIS
     Route: 048
  15. FLUMETHOLON [Concomitant]
     Active Substance: FLUOROMETHOLONE
     Indication: CONJUNCTIVITIS
     Dosage: UNK, UNKNOWN FREQ.
     Route: 065
  16. BAYASPIRIN [Concomitant]
     Active Substance: ASPIRIN
     Indication: PROPHYLAXIS
     Route: 048
  17. GASCON [Concomitant]
     Active Substance: DIMETHICONE
     Indication: PROPHYLAXIS
     Route: 048
     Dates: end: 20090323
  18. GASMOTIN [Concomitant]
     Active Substance: MOSAPRIDE CITRATE
     Indication: PROPHYLAXIS
     Route: 048
  19. BONALON [Concomitant]
     Active Substance: ALENDRONATE SODIUM
     Indication: OSTEOPOROSIS
     Route: 048
     Dates: end: 20120428
  20. CRAVIT [Concomitant]
     Active Substance: LEVOFLOXACIN
     Indication: PHARYNGITIS
     Route: 065
  21. MEDICON                            /00048102/ [Concomitant]
     Active Substance: DEXTROMETHORPHAN HYDROBROMIDE
     Indication: PHARYNGITIS
     Route: 065
  22. DASEN [Concomitant]
     Indication: BRONCHITIS
     Route: 048
  23. PREDONINE [Suspect]
     Active Substance: PREDNISOLONE\PREDNISOLONE ACETATE\PREDNISOLONE SODIUM SUCCINATE
     Indication: LUPUS NEPHRITIS
     Route: 048
  24. MUCOSTA [Concomitant]
     Active Substance: REBAMIPIDE
     Indication: PROPHYLAXIS
     Route: 048
  25. BERIZYM [Concomitant]
     Active Substance: CELLULASE\DIASTASE\LIPASE
     Indication: PRODUCT USED FOR UNKNOWN INDICATION
     Route: 048
     Dates: end: 20080316
  26. PROTECADIN [Concomitant]
     Active Substance: LAFUTIDINE
     Indication: PROPHYLAXIS
     Route: 048
     Dates: start: 20081229, end: 20131206
  27. CRAVIT [Concomitant]
     Active Substance: LEVOFLOXACIN
     Route: 065
  28. CRAVIT [Concomitant]
     Active Substance: LEVOFLOXACIN
     Route: 065
  29. CRAVIT [Concomitant]
     Active Substance: LEVOFLOXACIN
     Route: 065
  30. CRAVIT [Concomitant]
     Active Substance: LEVOFLOXACIN
     Route: 065
  31. CRAVIT [Concomitant]
     Active Substance: LEVOFLOXACIN
     Indication: UPPER RESPIRATORY TRACT INFLAMMATION
     Route: 065
  32. CRAVIT [Concomitant]
     Active Substance: LEVOFLOXACIN
     Route: 065
  33. CRAVIT [Concomitant]
     Active Substance: LEVOFLOXACIN
     Route: 065
  34. MEDICON                            /00048102/ [Concomitant]
     Active Substance: DEXTROMETHORPHAN HYDROBROMIDE
     Route: 065
  35. PL [Concomitant]
     Active Substance: ACETAMINOPHEN\CAFFEINE\PROMETHAZINE\SALICYLAMIDE
     Indication: PHARYNGITIS
     Route: 065
  36. ALFAROL [Concomitant]
     Active Substance: ALFACALCIDOL
     Indication: PROPHYLAXIS
     Dosage: 0.5 ?G, ONCE DAILY
     Route: 048

REACTIONS (13)
  - Fibrous histiocytoma [Unknown]
  - Pharyngitis [Recovering/Resolving]
  - Headache [Recovering/Resolving]
  - Pharyngitis [Recovered/Resolved]
  - Cataract [Recovering/Resolving]
  - Conjunctivitis [Unknown]
  - Seborrhoeic keratosis [Unknown]
  - Dizziness [Recovering/Resolving]
  - Tremor [Unknown]
  - Upper respiratory tract inflammation [Recovering/Resolving]
  - Bronchitis [Recovering/Resolving]
  - Back pain [Recovering/Resolving]
  - Cerebrovascular disorder [Not Recovered/Not Resolved]

NARRATIVE: CASE EVENT DATE: 20080121
